FAERS Safety Report 15264027 (Version 1)
Quarter: 2018Q3

REPORT INFORMATION
  Report Type: Spontaneous
  Country: US (occurrence: US)
  Receive Date: 20180810
  Receipt Date: 20180810
  Transmission Date: 20181010
  Serious: Yes (Other)
  Sender: FDA-Public Use
  Company Number: US-STRIDES ARCOLAB LIMITED-2018SP004087

PATIENT

DRUGS (8)
  1. CIDOFOVIR. [Suspect]
     Active Substance: CIDOFOVIR
     Indication: ADENOVIRUS INFECTION
     Dosage: 1 MG/KG, THRICE  A WEEK
     Route: 042
  2. ANTITHYMOCYTE IMMUNOGLOBULIN (RABBIT) [Concomitant]
     Active Substance: LAPINE T-LYMPHOCYTE IMMUNE GLOBULIN
     Indication: INTESTINAL TRANSPLANT
     Dosage: 2 MG/KG, UNK
     Route: 042
  3. PREDNISONE. [Concomitant]
     Active Substance: PREDNISONE
     Indication: INTESTINAL TRANSPLANT
     Dosage: UNK, UNKNOWN
     Route: 065
  4. BASILIXIMAB [Concomitant]
     Active Substance: BASILIXIMAB
     Indication: INTESTINAL TRANSPLANT
     Dosage: 20 MG, MONTHLY
     Route: 042
  5. TACROLIMUS. [Suspect]
     Active Substance: TACROLIMUS
     Indication: INTESTINAL TRANSPLANT
     Dosage: 12?15 NG/ML
     Route: 065
  6. VALGANCICLOVIR. [Concomitant]
     Active Substance: VALGANCICLOVIR
     Indication: ANTIVIRAL PROPHYLAXIS
     Dosage: UNK, UNKNOWN
     Route: 065
  7. TACROLIMUS. [Suspect]
     Active Substance: TACROLIMUS
     Dosage: DECREASED TO 8?10 NG/ML
  8. RITUXIMAB. [Concomitant]
     Active Substance: RITUXIMAB
     Indication: INTESTINAL TRANSPLANT
     Dosage: 150 MG/M2, UNKNOWN
     Route: 042

REACTIONS (2)
  - Off label use [Unknown]
  - Renal impairment [Unknown]
